FAERS Safety Report 19808575 (Version 2)
Quarter: 2021Q4

REPORT INFORMATION
  Report Type: Report from Study
  Country: US (occurrence: US)
  Receive Date: 20210909
  Receipt Date: 20211007
  Transmission Date: 20220303
  Serious: Yes (Hospitalization)
  Sender: FDA-Public Use
  Company Number: NVSC2021US202610

PATIENT
  Age: 16 Year
  Sex: Female
  Weight: 45.1 kg

DRUGS (3)
  1. TOBI PODHALER [Suspect]
     Active Substance: TOBRAMYCIN
     Indication: Pseudomonas infection
     Dosage: 112 MG, BID
     Dates: start: 20210802
  2. AZITHROMYCIN ANHYDROUS [Suspect]
     Active Substance: AZITHROMYCIN ANHYDROUS
     Indication: Antiinflammatory therapy
     Dosage: 500 MILLIGRAM, 3XW
     Route: 048
     Dates: start: 201601
  3. CAYSTON [Suspect]
     Active Substance: AZTREONAM
     Indication: Pseudomonas infection
     Dosage: 75 MILLIGRAM, TID
     Route: 065
     Dates: start: 20210701

REACTIONS (1)
  - Infective pulmonary exacerbation of cystic fibrosis [Not Recovered/Not Resolved]

NARRATIVE: CASE EVENT DATE: 20210830
